FAERS Safety Report 4496854-3 (Version None)
Quarter: 2004Q4

REPORT INFORMATION
  Report Type: 
  Country: None (occurrence: None)
  Receive Date: 20041109
  Receipt Date: 20041101
  Transmission Date: 20050328
  Serious: Yes (Other)
  Sender: FDA-Public Use
  Company Number: GS-04-863

PATIENT
  Sex: Female

DRUGS (3)
  1. DIGOXIN [Suspect]
     Indication: OSTEOPOROSIS
     Route: 065
  2. BENDROFLUAZIDE [Suspect]
     Indication: OSTEOPOROSIS
     Route: 065
  3. DILTIAZEM [Suspect]
     Indication: OSTEOPOROSIS
     Route: 065

REACTIONS (7)
  - ATRIOVENTRICULAR BLOCK COMPLETE [None]
  - CHEST PAIN [None]
  - DIZZINESS [None]
  - FALL [None]
  - HYPOKALAEMIA [None]
  - NAUSEA [None]
  - VOMITING [None]
